FAERS Safety Report 21322734 (Version 2)
Quarter: 2022Q3

REPORT INFORMATION
  Report Type: Report from Study
  Country: NC (occurrence: FR)
  Receive Date: 20220912
  Receipt Date: 20220920
  Transmission Date: 20221027
  Serious: Yes (Death, Other)
  Sender: FDA-Public Use
  Company Number: 2022A310544

PATIENT
  Sex: Male
  Weight: 98 kg

DRUGS (2)
  1. EVUSHELD [Suspect]
     Active Substance: CILGAVIMAB\TIXAGEVIMAB
     Indication: Prophylaxis
     Dosage: (TIXAGEVIMAB 150 MG/CILGAVIMAB 150 MG) ONCE/SINGLE ADMINISTRATION
     Route: 030
     Dates: start: 20220301
  2. CASIRIVIMAB\IMDEVIMAB [Concomitant]
     Active Substance: CASIRIVIMAB\IMDEVIMAB
     Indication: COVID-19 prophylaxis
     Dates: start: 20220104

REACTIONS (2)
  - COVID-19 [Unknown]
  - Acute myeloid leukaemia recurrent [Fatal]
